FAERS Safety Report 9260201 (Version 1)
Quarter: 2013Q2

REPORT INFORMATION
  Report Type: Spontaneous
  Country: US (occurrence: US)
  Receive Date: 20130429
  Receipt Date: 20130429
  Transmission Date: 20140414
  Serious: No
  Sender: FDA-Public Use
  Company Number: US-PFIZER INC-2013132769

PATIENT
  Sex: Female

DRUGS (3)
  1. LYRICA [Suspect]
     Dosage: 25 MG, 1X/DAY
     Dates: start: 201304
  2. LYRICA [Suspect]
     Dosage: 25 MG, 2X/DAY
     Dates: start: 201304
  3. COLLAGEN [Suspect]
     Indication: SUPPLEMENTATION THERAPY
     Dosage: UNK

REACTIONS (1)
  - Nausea [Unknown]
